FAERS Safety Report 5803284-8 (Version None)
Quarter: 2008Q3

REPORT INFORMATION
  Report Type: 
  Country: None (occurrence: None)
  Receive Date: 20080708
  Receipt Date: 20080702
  Transmission Date: 20090109
  Serious: Yes (Hospitalization)
  Sender: FDA-Public Use
  Company Number: A0735843A

PATIENT
  Sex: Male

DRUGS (4)
  1. COMBIVIR [Suspect]
     Indication: HIV INFECTION
     Dosage: 1TAB TWICE PER DAY
     Route: 048
     Dates: start: 19970101
  2. ZYVOX [Suspect]
     Dosage: 1TSP TWICE PER DAY
     Route: 048
     Dates: start: 20040101, end: 20040101
  3. VIREAD [Concomitant]
  4. VIRACEPT [Concomitant]

REACTIONS (9)
  - ASTHENIA [None]
  - DEHYDRATION [None]
  - DEPRESSION [None]
  - FATIGUE [None]
  - FURUNCLE [None]
  - PALPITATIONS [None]
  - RED BLOOD CELL COUNT DECREASED [None]
  - STAPHYLOCOCCAL INFECTION [None]
  - TENDON INJURY [None]
